FAERS Safety Report 7092510-6 (Version None)
Quarter: 2010Q4

REPORT INFORMATION
  Report Type: 
  Country: None (occurrence: None)
  Receive Date: 20101108
  Receipt Date: 20101108
  Transmission Date: 20110411
  Serious: Yes (Hospitalization, Other)
  Sender: FDA-Public Use
  Company Number: None

PATIENT
  Sex: Female
  Weight: 49.8957 kg

DRUGS (3)
  1. ACIPHEX [Suspect]
     Indication: BARRETT'S OESOPHAGUS
     Dosage: 20 MG DAILY PO (APRIL TO PRESENT - 1.5 MO)
     Route: 048
  2. ACIPHEX [Suspect]
     Indication: GASTROOESOPHAGEAL REFLUX DISEASE
     Dosage: 20 MG DAILY PO (APRIL TO PRESENT - 1.5 MO)
     Route: 048
  3. PRILOSEC OTC [Suspect]
     Indication: GASTROOESOPHAGEAL REFLUX DISEASE
     Dosage: 20 MG DAILY PO (JANUARY THROUGH MARCH)
     Route: 048

REACTIONS (1)
  - BONE PAIN [None]
